FAERS Safety Report 18407031 (Version 4)
Quarter: 2021Q3

REPORT INFORMATION
  Report Type: Report from Study
  Country: US (occurrence: US)
  Receive Date: 20201020
  Receipt Date: 20210809
  Transmission Date: 20211014
  Serious: No
  Sender: FDA-Public Use
  Company Number: NVSC2020US278604

PATIENT
  Age: 40 Year
  Sex: Male

DRUGS (1)
  1. KESIMPTA [Suspect]
     Active Substance: OFATUMUMAB
     Indication: RELAPSING MULTIPLE SCLEROSIS
     Dosage: 20 MG, QMO
     Route: 058
     Dates: start: 20201008

REACTIONS (3)
  - Herpes simplex [Not Recovered/Not Resolved]
  - Injection related reaction [Unknown]
  - Cardiac output decreased [Unknown]

NARRATIVE: CASE EVENT DATE: 20201105
